FAERS Safety Report 18942848 (Version 3)
Quarter: 2024Q2

REPORT INFORMATION
  Report Type: Report from Study
  Country: ES (occurrence: ES)
  Receive Date: 20210225
  Receipt Date: 20240420
  Transmission Date: 20240716
  Serious: Yes (Hospitalization, Other)
  Sender: FDA-Public Use
  Company Number: ES-CELLTRION INC.-2021ES002256

PATIENT

DRUGS (5)
  1. INFLIXIMAB [Suspect]
     Active Substance: INFLIXIMAB
     Indication: Product used for unknown indication
     Dosage: UNK
     Route: 042
     Dates: start: 20180920
  2. REMICADE [Suspect]
     Active Substance: INFLIXIMAB
     Indication: Product used for unknown indication
     Dosage: UNK
     Route: 042
     Dates: start: 20180920
  3. VEDOLIZUMAB [Suspect]
     Active Substance: VEDOLIZUMAB
     Indication: Inflammatory bowel disease
     Dosage: UNK
     Route: 042
     Dates: start: 20180706, end: 20180820
  4. MESALAMINE [Concomitant]
     Active Substance: MESALAMINE
     Dosage: UNK
  5. CALCIUM [Concomitant]
     Active Substance: CALCIUM
     Dosage: UNK

REACTIONS (1)
  - Cutaneous lupus erythematosus [Recovered/Resolved]

NARRATIVE: CASE EVENT DATE: 20200622
